FAERS Safety Report 5632156-7 (Version None)
Quarter: 2008Q1

REPORT INFORMATION
  Report Type: 
  Country: None (occurrence: None)
  Receive Date: 20080220
  Receipt Date: 20080214
  Transmission Date: 20080703
  Serious: Yes (Other)
  Sender: FDA-Public Use
  Company Number: CA-MERCK-0802CAN00059

PATIENT
  Sex: Male

DRUGS (3)
  1. ZETIA [Suspect]
     Route: 048
  2. ATORVASTATIN CALCIUM [Concomitant]
     Route: 065
  3. ROSUVASTATIN CALCIUM [Concomitant]
     Route: 065

REACTIONS (1)
  - MEMORY IMPAIRMENT [None]
